FAERS Safety Report 25776914 (Version 1)
Quarter: 2025Q3

REPORT INFORMATION
  Report Type: Spontaneous
  Country: US (occurrence: US)
  Receive Date: 20250909
  Receipt Date: 20250909
  Transmission Date: 20251020
  Serious: No
  Sender: DOMPE FARMACEUTICI
  Company Number: US-FARMAPROD-202503-1018

PATIENT
  Age: 80 Year
  Sex: Female

DRUGS (17)
  1. OXERVATE [Suspect]
     Active Substance: CENEGERMIN-BKBJ
     Indication: Neurotrophic keratopathy
     Route: 047
     Dates: start: 20250326
  2. OXERVATE [Suspect]
     Active Substance: CENEGERMIN-BKBJ
  3. HAIR, SKIN AND NAILS [Concomitant]
  4. WOMEN^S 50 PLUS DAILY FORMULA [Concomitant]
  5. VITAMIN D3 [Concomitant]
     Active Substance: CHOLECALCIFEROL
  6. ESOMEPRAZOLE MAGNESIUM [Concomitant]
     Active Substance: ESOMEPRAZOLE MAGNESIUM
  7. GABAPENTIN [Concomitant]
     Active Substance: GABAPENTIN
  8. LEVOTHYROXINE SODIUM [Concomitant]
     Active Substance: LEVOTHYROXINE SODIUM
  9. ATENOLOL [Concomitant]
     Active Substance: ATENOLOL
  10. CEQUA [Concomitant]
     Active Substance: CYCLOSPORINE
  11. SYSTANE (HYPROMELLOSE 2910 (4000 MPA.S)) [Concomitant]
     Active Substance: HYPROMELLOSE 2910 (4000 MPA.S)
  12. CALCIUM [Concomitant]
     Active Substance: CALCIUM
  13. VITAMIN B12 [Concomitant]
     Active Substance: CYANOCOBALAMIN
  14. LORAZEPAM [Concomitant]
     Active Substance: LORAZEPAM
  15. HYDROXYCHLOROQUINE SULFATE [Concomitant]
     Active Substance: HYDROXYCHLOROQUINE SULFATE
  16. FAMOTIDINE [Concomitant]
     Active Substance: FAMOTIDINE
  17. METHOTREXATE [Concomitant]
     Active Substance: METHOTREXATE

REACTIONS (4)
  - Eye pain [Not Recovered/Not Resolved]
  - Lacrimation increased [Not Recovered/Not Resolved]
  - Eye irritation [Not Recovered/Not Resolved]
  - Product dose omission issue [Unknown]

NARRATIVE: CASE EVENT DATE: 20250326
